FAERS Safety Report 6583154-0 (Version None)
Quarter: 2010Q1

REPORT INFORMATION
  Report Type: 
  Country: None (occurrence: None)
  Receive Date: 20100216
  Receipt Date: 20100208
  Transmission Date: 20100710
  Serious: Yes (Other)
  Sender: FDA-Public Use
  Company Number: US-AMGEN-QUU391262

PATIENT
  Sex: Female

DRUGS (1)
  1. ARANESP [Suspect]
     Indication: ANAEMIA
     Route: 065
     Dates: start: 20090101

REACTIONS (2)
  - ANAEMIA [None]
  - BIOPSY BONE MARROW ABNORMAL [None]
